FAERS Safety Report 6677412-9 (Version None)
Quarter: 2010Q2

REPORT INFORMATION
  Report Type: 
  Country: None (occurrence: None)
  Receive Date: 20100412
  Receipt Date: 20100129
  Transmission Date: 20101027
  Serious: No
  Sender: FDA-Public Use
  Company Number: DE-ALEXION-A201000114

PATIENT

DRUGS (10)
  1. SOLIRIS [Suspect]
     Indication: PAROXYSMAL NOCTURNAL HAEMOGLOBINURIA
     Dosage: 600 MG, UNK
     Route: 042
     Dates: start: 20081201
  2. SOLIRIS [Suspect]
     Dosage: 600 MG, UNK
     Route: 042
     Dates: start: 20071010, end: 20080901
  3. BONDRONAT                          /01304701/ [Concomitant]
     Indication: OSTEOPOROSIS
     Dosage: 2 MG, Q4WKS
     Dates: start: 20080401
  4. FOLSAN [Concomitant]
     Indication: LABORATORY TEST ABNORMAL
     Dosage: 5 MG, UNK
     Dates: start: 20080101, end: 20080801
  5. FOLSAN [Concomitant]
     Indication: ANAEMIA
  6. CYANOCOBALAMIN [Concomitant]
     Indication: LABORATORY TEST ABNORMAL
     Dosage: 1000 MCG
     Dates: start: 20080101, end: 20080801
  7. CYANOCOBALAMIN [Concomitant]
     Indication: ANAEMIA
  8. DECORTIN H [Concomitant]
     Indication: HAEMOLYSIS
     Dosage: 5 MG, UNK
  9. BISOPROLOL [Concomitant]
     Indication: HYPERTENSION
     Dosage: 2.5 MG, UNK
     Dates: start: 20040101
  10. SIMVASTATIN [Concomitant]
     Indication: BLOOD CHOLESTEROL INCREASED
     Dosage: 20 MG, UNK
     Dates: start: 20070101

REACTIONS (2)
  - IRON OVERLOAD [None]
  - SERUM FERRITIN INCREASED [None]
